FAERS Safety Report 25613236 (Version 1)
Quarter: 2025Q3

REPORT INFORMATION
  Report Type: Spontaneous
  Country: US (occurrence: US)
  Receive Date: 20250728
  Receipt Date: 20250728
  Transmission Date: 20251021
  Serious: Yes (Other)
  Sender: SANOFI AVENTIS
  Company Number: US-SA-2025SA214883

PATIENT
  Age: 56 Year
  Sex: Female
  Weight: 111.36 kg

DRUGS (13)
  1. DUPIXENT [Suspect]
     Active Substance: DUPILUMAB
     Indication: Dermatitis atopic
     Dosage: 300 MG, QOW
     Route: 058
  2. ACETAMINOPHEN [Concomitant]
     Active Substance: ACETAMINOPHEN
  3. LIDOCAINE [Concomitant]
     Active Substance: LIDOCAINE
  4. DIPHENHYDRAMINE HYDROCHLORIDE [Concomitant]
     Active Substance: DIPHENHYDRAMINE HYDROCHLORIDE
  5. CUVITRU [Concomitant]
     Active Substance: HUMAN IMMUNOGLOBULIN G
  6. VITAMIN D2 [Concomitant]
     Active Substance: ERGOCALCIFEROL
  7. BUPROPION HYDROCHLORIDE [Concomitant]
     Active Substance: BUPROPION HYDROCHLORIDE
  8. ARMOUR THYROID [Concomitant]
     Active Substance: THYROID, PORCINE
  9. ROSUVASTATIN CALCIUM [Concomitant]
     Active Substance: ROSUVASTATIN CALCIUM
  10. PREVACID [Concomitant]
     Active Substance: LANSOPRAZOLE
  11. MIRABEGRON [Concomitant]
     Active Substance: MIRABEGRON
  12. TRELEGY ELLIPTA [Concomitant]
     Active Substance: FLUTICASONE FUROATE\UMECLIDINIUM BROMIDE\VILANTEROL TRIFENATATE
  13. FLUOXETINE HYDROCHLORIDE [Concomitant]
     Active Substance: FLUOXETINE HYDROCHLORIDE

REACTIONS (2)
  - Pneumonia [Unknown]
  - Bronchitis [Unknown]
